FAERS Safety Report 9200813 (Version 1)
Quarter: 2013Q1

REPORT INFORMATION
  Report Type: Spontaneous
  Country: US (occurrence: None)
  Receive Date: 20130328
  Receipt Date: 20130328
  Transmission Date: 20140127
  Serious: No
  Sender: FDA-Public Use
  Company Number: None

PATIENT
  Age: 52 Year
  Sex: Male

DRUGS (1)
  1. COGENTIN [Suspect]
     Dosage: 0.5MG EVERY OTHER DAY PO
     Route: 048

REACTIONS (2)
  - Movement disorder [None]
  - Tremor [None]
